FAERS Safety Report 11399062 (Version 2)
Quarter: 2015Q4

REPORT INFORMATION
  Report Type: Spontaneous
  Country: US (occurrence: US)
  Receive Date: 20150820
  Receipt Date: 20151121
  Transmission Date: 20160304
  Serious: No
  Sender: FDA-Public Use
  Company Number: US-CELGENEUS-USA-2015070834

PATIENT
  Age: 55 Year
  Sex: Female
  Weight: 54.93 kg

DRUGS (1)
  1. OTEZLA [Suspect]
     Active Substance: APREMILAST
     Indication: PSORIASIS
     Dosage: 60 MILLIGRAM
     Route: 048
     Dates: start: 20150619

REACTIONS (3)
  - Pain [Unknown]
  - Peripheral swelling [Not Recovered/Not Resolved]
  - Bone deformity [Unknown]

NARRATIVE: CASE EVENT DATE: 201506
